FAERS Safety Report 15741742 (Version 2)
Quarter: 2018Q4

REPORT INFORMATION
  Report Type: Spontaneous
  Country: ES (occurrence: ES)
  Receive Date: 20181219
  Receipt Date: 20181224
  Transmission Date: 20190205
  Serious: Yes (Death)
  Sender: FDA-Public Use
  Company Number: ES-ALLERGAN-1858012US

PATIENT

DRUGS (1)
  1. BOTOX [Suspect]
     Active Substance: ONABOTULINUMTOXINA
     Indication: RAYNAUD^S PHENOMENON
     Dosage: ACTUAL: 4 AND 8 UNITS OF TOXIN PER SITE USING A 30 G NEEDLE, DEPENDING ON THE SEVERITY
     Route: 030

REACTIONS (2)
  - Peritonitis [Fatal]
  - Off label use [Unknown]
